FAERS Safety Report 15002454 (Version 1)
Quarter: 2018Q2

REPORT INFORMATION
  Report Type: Spontaneous
  Country: JP (occurrence: JP)
  Receive Date: 20180612
  Receipt Date: 20180612
  Transmission Date: 20180711
  Serious: Yes (Other)
  Sender: FDA-Public Use
  Company Number: JP-MYLANLABS-2018M1039539

PATIENT
  Age: 50 Year
  Sex: Female

DRUGS (3)
  1. LIDOCAINE. [Suspect]
     Active Substance: LIDOCAINE
     Indication: LOCAL ANAESTHESIA
     Route: 056
     Dates: start: 20160201
  2. BRILLIANT BLUE G [Concomitant]
     Indication: INTERNAL LIMITING MEMBRANE PEELING
     Route: 065
  3. SULFUR HEXAFLUORIDE [Concomitant]
     Active Substance: SULFUR HEXAFLUORIDE
     Indication: INTERNAL LIMITING MEMBRANE PEELING
     Route: 065

REACTIONS (4)
  - Vascular compression [Unknown]
  - Optic nerve compression [Unknown]
  - Optic neuropathy [Not Recovered/Not Resolved]
  - Hemianopia [Not Recovered/Not Resolved]
